FAERS Safety Report 11514006 (Version 1)
Quarter: 2015Q3

REPORT INFORMATION
  Report Type: Spontaneous
  Country: GB (occurrence: GB)
  Receive Date: 20150916
  Receipt Date: 20150916
  Transmission Date: 20151125
  Serious: Yes (Hospitalization, Disabling, Other)
  Sender: FDA-Public Use
  Company Number: PHHY2015GB107929

PATIENT
  Age: 54 Year
  Sex: Female
  Weight: 47.62 kg

DRUGS (2)
  1. RAMIPRIL. [Suspect]
     Active Substance: RAMIPRIL
     Indication: HYPERTENSION
     Dosage: 5 MG, QD
     Route: 048
     Dates: start: 200905, end: 20150818
  2. ISOKET [Suspect]
     Active Substance: ISOSORBIDE DINITRATE
     Indication: CHEST PAIN
     Route: 051
     Dates: start: 20150816, end: 20150816

REACTIONS (13)
  - Chest pain [Recovered/Resolved with Sequelae]
  - Tremor [Recovering/Resolving]
  - Peripheral swelling [Recovering/Resolving]
  - Mouth swelling [Recovering/Resolving]
  - Syncope [Not Recovered/Not Resolved]
  - Angioedema [Unknown]
  - Mastocytosis [Unknown]
  - Rash pruritic [Recovered/Resolved with Sequelae]
  - Feeling hot [Not Recovered/Not Resolved]
  - Throat tightness [Recovering/Resolving]
  - Pain in jaw [Recovered/Resolved with Sequelae]
  - Pharyngeal oedema [Recovering/Resolving]
  - Swelling face [Unknown]

NARRATIVE: CASE EVENT DATE: 20150816
